FAERS Safety Report 25318745 (Version 1)
Quarter: 2025Q2

REPORT INFORMATION
  Report Type: Report from Study
  Country: MG (occurrence: MG)
  Receive Date: 20250515
  Receipt Date: 20250515
  Transmission Date: 20250716
  Serious: Yes (Other)
  Sender: BAYER HEALTHCARE PHARMACEUTICALS INC.
  Company Number: MG-BAYER-2025A064519

PATIENT
  Age: 12 Year
  Sex: Female

DRUGS (1)
  1. PRAZIQUANTEL [Suspect]
     Active Substance: PRAZIQUANTEL
     Indication: Schistosomiasis
     Route: 048

REACTIONS (1)
  - Seizure [None]
